FAERS Safety Report 18914483 (Version 1)
Quarter: 2021Q1

REPORT INFORMATION
  Report Type: Spontaneous
  Country: US (occurrence: US)
  Receive Date: 20210218
  Receipt Date: 20210218
  Transmission Date: 20210420
  Serious: Yes (Other)
  Sender: FDA-Public Use
  Company Number: None

PATIENT
  Age: 52 Year
  Sex: Female
  Weight: 85.5 kg

DRUGS (7)
  1. MULTIVITAMIN [Concomitant]
     Active Substance: VITAMINS
  2. AJOVY [Suspect]
     Active Substance: FREMANEZUMAB-VFRM
     Indication: MIGRAINE
     Dates: start: 20191101, end: 20201110
  3. EMGALITY [Suspect]
     Active Substance: GALCANEZUMAB-GNLM
  4. VITAMIN D3 [Concomitant]
     Active Substance: CHOLECALCIFEROL
  5. ZOMIG [Concomitant]
     Active Substance: ZOLMITRIPTAN
  6. FROVATRIPTAN. [Concomitant]
     Active Substance: FROVATRIPTAN
  7. NURTECH [Concomitant]

REACTIONS (2)
  - Arthralgia [None]
  - Burning sensation [None]

NARRATIVE: CASE EVENT DATE: 20200301
